FAERS Safety Report 7141391-0 (Version None)
Quarter: 2010Q4

REPORT INFORMATION
  Report Type: 
  Country: None (occurrence: None)
  Receive Date: 20101207
  Receipt Date: 20101130
  Transmission Date: 20110411
  Serious: Yes (Hospitalization)
  Sender: FDA-Public Use
  Company Number: US-SANOFI-AVENTIS-2010SA068822

PATIENT
  Sex: Female

DRUGS (6)
  1. MULTAQ [Suspect]
     Route: 065
     Dates: start: 20100421
  2. METOPROLOL [Concomitant]
  3. AMLODIPINE [Concomitant]
  4. OMEPRAZOLE [Concomitant]
  5. WARFARIN [Concomitant]
  6. ALPRAZOLAM [Concomitant]

REACTIONS (5)
  - BLOOD BILIRUBIN INCREASED [None]
  - COAGULOPATHY [None]
  - HEPATIC ENZYME INCREASED [None]
  - HEPATIC FAILURE [None]
  - INTERNATIONAL NORMALISED RATIO INCREASED [None]
